FAERS Safety Report 19783178 (Version 1)
Quarter: 2021Q3

REPORT INFORMATION
  Report Type: Spontaneous
  Country: FR (occurrence: FR)
  Receive Date: 20210903
  Receipt Date: 20210903
  Transmission Date: 20211014
  Serious: Yes (Other)
  Sender: FDA-Public Use
  Company Number: FR-SUN PHARMACEUTICAL INDUSTRIES LTD-2021R1-307723

PATIENT
  Age: 35 Year
  Sex: Female

DRUGS (2)
  1. VALACICLOVIR [Suspect]
     Active Substance: VALACYCLOVIR HYDROCHLORIDE
     Indication: CYTOMEGALOVIRUS INFECTION
     Dosage: 4 GRAM, DAILY
     Route: 048
  2. VALACICLOVIR [Suspect]
     Active Substance: VALACYCLOVIR HYDROCHLORIDE
     Dosage: 8 GRAM, DAILY
     Route: 048

REACTIONS (4)
  - Exposure during pregnancy [Unknown]
  - Pruritus [Unknown]
  - Acute kidney injury [Recovering/Resolving]
  - Asthenia [Unknown]
